FAERS Safety Report 5989414-6 (Version None)
Quarter: 2008Q4

REPORT INFORMATION
  Report Type: 
  Country: None (occurrence: None)
  Receive Date: 20081210
  Receipt Date: 20081201
  Transmission Date: 20090506
  Serious: Yes (Hospitalization)
  Sender: FDA-Public Use
  Company Number: FI-PFIZER INC-2008101353

PATIENT

DRUGS (5)
  1. SALAZOPYRIN EN [Suspect]
     Dosage: 1 G, 2X/DAY
     Route: 048
  2. METHOTREXATE [Suspect]
  3. REMICADE [Suspect]
     Indication: PSORIATIC ARTHROPATHY
     Dosage: CYCLIC
     Route: 042
     Dates: start: 20071115, end: 20080103
  4. REMICADE [Suspect]
     Indication: RHEUMATOID ARTHRITIS
  5. OLMETEC [Concomitant]
     Route: 048

REACTIONS (1)
  - LYMPH NODE TUBERCULOSIS [None]
